FAERS Safety Report 6056680-0 (Version None)
Quarter: 2009Q1

REPORT INFORMATION
  Report Type: 
  Country: None (occurrence: None)
  Receive Date: 20090126
  Receipt Date: 20090126
  Transmission Date: 20090719
  Serious: Yes (Hospitalization)
  Sender: FDA-Public Use
  Company Number: None

PATIENT
  Sex: Female
  Weight: 134.5 kg

DRUGS (8)
  1. CISPLATIN [Suspect]
     Dosage: 70 MG
  2. ALLOPURINOL [Concomitant]
  3. ENALAPRIL MALEATE [Concomitant]
  4. INSULIN [Concomitant]
  5. LASIX [Concomitant]
  6. NAPROXEN [Concomitant]
  7. POTASSIUM SUPPLEMENT [Concomitant]
  8. HYDROCHLOROTHIAZIDE [Concomitant]

REACTIONS (3)
  - HYPOPHAGIA [None]
  - RENAL FAILURE ACUTE [None]
  - RENAL TUBULAR NECROSIS [None]
